FAERS Safety Report 17510275 (Version 2)
Quarter: 2020Q1

REPORT INFORMATION
  Report Type: Report from Study
  Country: None (occurrence: US)
  Receive Date: 20200306
  Receipt Date: 20200319
  Transmission Date: 20200409
  Serious: Yes (Death, Other)
  Sender: FDA-Public Use
  Company Number: US-ABBVIE-19K-163-2864832-00

PATIENT
  Sex: Female
  Weight: 47.67 kg

DRUGS (11)
  1. LOSARTAN POTASSIUM. [Concomitant]
     Active Substance: LOSARTAN POTASSIUM
     Indication: HYPERTENSION
  2. AMLODIPIN [Concomitant]
     Active Substance: AMLODIPINE BESYLATE
     Indication: HYPERTENSION
  3. HUMIRA [Suspect]
     Active Substance: ADALIMUMAB
     Indication: PSORIATIC ARTHROPATHY
     Route: 058
     Dates: start: 20180420, end: 201910
  4. METHOTREXATE. [Concomitant]
     Active Substance: METHOTREXATE
     Indication: PSORIATIC ARTHROPATHY
  5. HYDROCODONE [Concomitant]
     Active Substance: HYDROCODONE
     Indication: PAIN
  6. ROPINIROLE. [Concomitant]
     Active Substance: ROPINIROLE
     Indication: RESTLESS LEGS SYNDROME
  7. HYDROCODONE [Concomitant]
     Active Substance: HYDROCODONE
     Indication: ARTHRITIS
  8. HUMIRA [Suspect]
     Active Substance: ADALIMUMAB
     Indication: PSORIASIS
  9. FAMOTIDINE. [Concomitant]
     Active Substance: FAMOTIDINE
     Indication: GASTROOESOPHAGEAL REFLUX DISEASE
  10. SPIRIVA [Concomitant]
     Active Substance: TIOTROPIUM BROMIDE MONOHYDRATE
     Indication: RESPIRATORY DISORDER
  11. PRILOSEC [Concomitant]
     Active Substance: OMEPRAZOLE MAGNESIUM
     Indication: GASTROOESOPHAGEAL REFLUX DISEASE

REACTIONS (7)
  - Ulcer [Unknown]
  - Painful respiration [Unknown]
  - Wound secretion [Unknown]
  - Pleural effusion [Not Recovered/Not Resolved]
  - Lung neoplasm malignant [Fatal]
  - Arthralgia [Unknown]
  - Wound complication [Unknown]
